FAERS Safety Report 6343358-9 (Version None)
Quarter: 2009Q3

REPORT INFORMATION
  Report Type: 
  Country: None (occurrence: None)
  Receive Date: 20090908
  Receipt Date: 20090831
  Transmission Date: 20100115
  Serious: Yes (Hospitalization)
  Sender: FDA-Public Use
  Company Number: PHHY2009GB37254

PATIENT
  Sex: Female

DRUGS (3)
  1. CLOZARIL [Suspect]
     Indication: SCHIZOPHRENIA
     Dosage: UNK
     Dates: start: 20090615
  2. BETA BLOCKING AGENTS [Suspect]
  3. SELECTIVE SEROTONIN REUPTAKE INHIBITORS [Suspect]

REACTIONS (1)
  - OVERDOSE [None]
